FAERS Safety Report 10252267 (Version 1)
Quarter: 2014Q2

REPORT INFORMATION
  Report Type: Spontaneous
  Country: AT (occurrence: AT)
  Receive Date: 20140623
  Receipt Date: 20140623
  Transmission Date: 20141212
  Serious: Yes (Other)
  Sender: FDA-Public Use
  Company Number: AT-CELGENEUS-009-50794-14061787

PATIENT
  Age: 65 Year
  Sex: Female
  Weight: 65 kg

DRUGS (10)
  1. VIDAZA [Suspect]
     Indication: 5Q MINUS SYNDROME
     Dosage: 75 MILLIGRAM/SQ. METER
     Route: 058
     Dates: start: 201201, end: 201208
  2. VIDAZA [Suspect]
     Dosage: 75 MILLIGRAM/SQ. METER
     Route: 058
     Dates: start: 201301
  3. VIDAZA [Suspect]
     Dosage: 75 MILLIGRAM/SQ. METER
     Route: 058
     Dates: start: 201310
  4. DEFERASIROX [Concomitant]
     Indication: IRON OVERLOAD
     Dosage: 1000 MILLIGRAM
     Route: 065
     Dates: start: 201111
  5. DEFERASIROX [Concomitant]
     Dosage: 1500 MILLIGRAM
     Route: 065
     Dates: start: 201208
  6. DEFERASIROX [Concomitant]
     Dosage: 1500 MILLIGRAM
     Route: 065
     Dates: start: 201301, end: 201308
  7. RED BLOOD CELLS [Concomitant]
     Indication: PRODUCT USED FOR UNKNOWN INDICATION
     Dosage: 6 TRANSFUSION
     Route: 065
     Dates: start: 200902
  8. RED BLOOD CELLS [Concomitant]
     Dosage: 18 TRANSFUSION
     Route: 065
     Dates: start: 201109, end: 201112
  9. RED BLOOD CELLS [Concomitant]
     Dosage: 2 TRANSFUSIONS
     Route: 065
     Dates: start: 201301
  10. RED BLOOD CELLS [Concomitant]
     Dosage: .0667 IU (INTERNATIONAL UNIT)
     Route: 065
     Dates: start: 201310

REACTIONS (8)
  - Renal failure acute [Recovered/Resolved]
  - Dehydration [Recovered/Resolved]
  - Full blood count decreased [Unknown]
  - Serum ferritin increased [Recovered/Resolved]
  - Weight decreased [Unknown]
  - General physical health deterioration [Unknown]
  - Neuropathy peripheral [Unknown]
  - Myelodysplastic syndrome [Unknown]
